FAERS Safety Report 4617596-7 (Version None)
Quarter: 2005Q1

REPORT INFORMATION
  Report Type: 
  Country: None (occurrence: None)
  Receive Date: 20050322
  Receipt Date: 20050310
  Transmission Date: 20050727
  Serious: Yes (Hospitalization)
  Sender: FDA-Public Use
  Company Number: 212826

PATIENT
  Age: 72 Year
  Sex: Male

DRUGS (9)
  1. XOLAIR [Suspect]
     Indication: ASTHMA
     Dosage: 375 MG, Q2W, SUBCUTANEOUS
     Route: 058
     Dates: start: 20041204, end: 20041216
  2. XOLAIR [Suspect]
     Indication: ASTHMA
     Dosage: 375 MG, Q2W, SUBCUTANEOUS
     Route: 058
     Dates: start: 20041104, end: 20041230
  3. XOLAIR [Suspect]
  4. ADVAIR (FLUTICASONE PROPIONATE, SALMETEROL XINAFOATE) [Concomitant]
  5. ALBUTEROL (ALBUTEROL, ALBUTEROL SULFATE) [Concomitant]
  6. ATROVENT [Concomitant]
  7. PRILOSEC [Concomitant]
  8. SPIRIVA [Concomitant]
  9. FLU VACCINE (INFLUENZA VIRUS VACCINE) [Concomitant]

REACTIONS (5)
  - EJECTION FRACTION DECREASED [None]
  - MYOPERICARDITIS [None]
  - PERICARDIAL EFFUSION [None]
  - PHARMACEUTICAL PRODUCT COMPLAINT [None]
  - PYREXIA [None]
